FAERS Safety Report 4273872-1 (Version None)
Quarter: 2004Q1

REPORT INFORMATION
  Report Type: 
  Country: None (occurrence: None)
  Receive Date: 20040115
  Receipt Date: 20031230
  Transmission Date: 20041129
  Serious: Yes (Life-Threatening, Hospitalization)
  Sender: FDA-Public Use
  Company Number: E130649

PATIENT
  Age: 66 Year
  Sex: Male

DRUGS (7)
  1. OXALIPLATIN - SOLUTION - 100 MG/M2 [Suspect]
     Indication: PANCREATIC CARCINOMA METASTATIC
     Dosage: 100 MG/M2 ON D2; Q2W INTRAVENOUS NOS
     Route: 042
     Dates: start: 20020208, end: 20020208
  2. GEMCITABINE - SOLUTION - 1000 MG/M2 [Suspect]
     Dosage: 1000 MG/M2 ON D1; Q2W INTRAVENOUS NOS
     Route: 042
     Dates: start: 20020207, end: 20020207
  3. ZOPHREN (ONDANSETRON HCL) [Concomitant]
  4. ASPEGIC 1000 [Concomitant]
  5. CELECTOL [Concomitant]
  6. PARACETAMOL WITH CODEINE [Concomitant]
  7. GLUCOPHAGE RETARD (METFORMIN HCL) [Concomitant]

REACTIONS (5)
  - CORONARY ARTERY STENOSIS [None]
  - MASS [None]
  - MYOCARDIAL INFARCTION [None]
  - OEDEMA PERIPHERAL [None]
  - WEIGHT INCREASED [None]
